FAERS Safety Report 6434852-0 (Version None)
Quarter: 2009Q4

REPORT INFORMATION
  Report Type: 
  Country: None (occurrence: None)
  Receive Date: 20091109
  Receipt Date: 20091109
  Transmission Date: 20100525
  Serious: Yes (Other)
  Sender: FDA-Public Use
  Company Number: None

PATIENT
  Age: 55 Year
  Sex: Male
  Weight: 120.2032 kg

DRUGS (1)
  1. ZICAM COLD REMEDY NASEL GEL MATRIXX [Suspect]

REACTIONS (2)
  - HYPOGEUSIA [None]
  - HYPOSMIA [None]
